FAERS Safety Report 9075651 (Version 1)
Quarter: 2013Q1

REPORT INFORMATION
  Report Type: Report from Study
  Country: US (occurrence: US)
  Receive Date: 20130131
  Receipt Date: 20130131
  Transmission Date: 20140127
  Serious: No
  Sender: FDA-Public Use
  Company Number: US-ABBOTT-12P-163-1006320-00

PATIENT
  Age: 60 Year
  Sex: Female

DRUGS (4)
  1. HUMIRA [Suspect]
     Indication: SYSTEMIC LUPUS ERYTHEMATOSUS
     Dates: start: 201206
  2. HYDROQUINONE [Concomitant]
     Indication: PRODUCT USED FOR UNKNOWN INDICATION
  3. XANAX [Concomitant]
     Indication: ANXIETY
  4. TOVIAZ [Concomitant]
     Indication: URINARY INCONTINENCE

REACTIONS (7)
  - Amnesia [Not Recovered/Not Resolved]
  - Pain [Not Recovered/Not Resolved]
  - Contusion [Not Recovered/Not Resolved]
  - Headache [Not Recovered/Not Resolved]
  - Pain in extremity [Not Recovered/Not Resolved]
  - Local swelling [Not Recovered/Not Resolved]
  - Pain in extremity [Not Recovered/Not Resolved]
